FAERS Safety Report 8486539-0 (Version None)
Quarter: 2012Q3

REPORT INFORMATION
  Report Type: 
  Country: None (occurrence: None)
  Receive Date: 20120703
  Receipt Date: 20120620
  Transmission Date: 20120928
  Serious: Yes (Death)
  Sender: FDA-Public Use
  Company Number: JP-AMGEN-JPNSP2012040101

PATIENT
  Age: 88 Year
  Sex: Female

DRUGS (4)
  1. PREDNISOLONE [Concomitant]
     Dosage: 5 MG, UNK
     Route: 048
  2. RABEPRAZOLE SODIUM [Concomitant]
     Dosage: 10 MG, UNK
  3. ROMIPLATE [Suspect]
     Indication: IDIOPATHIC THROMBOCYTOPENIC PURPURA
     Dosage: UNK
     Route: 058
     Dates: start: 20110520, end: 20120611
  4. UNKNOWNDRUG [Concomitant]
     Dosage: UNK
     Route: 065

REACTIONS (2)
  - MELAENA [None]
  - HAEMATEMESIS [None]
